FAERS Safety Report 14238901 (Version 1)
Quarter: 2017Q4

REPORT INFORMATION
  Report Type: Spontaneous
  Country: US (occurrence: None)
  Receive Date: 20171129
  Receipt Date: 20171129
  Transmission Date: 20180321
  Serious: Yes (Hospitalization, Other)
  Sender: FDA-Public Use
  Company Number: None

PATIENT

DRUGS (2)
  1. NIFEDIPINE. [Suspect]
     Active Substance: NIFEDIPINE
     Indication: HYPERTENSION
     Route: 048
     Dates: start: 1992, end: 201710
  2. NIFEDIPINE. [Suspect]
     Active Substance: NIFEDIPINE
     Indication: DRUG THERAPY
     Route: 048
     Dates: start: 1992, end: 201710

REACTIONS (1)
  - Renal failure [None]

NARRATIVE: CASE EVENT DATE: 201710
